FAERS Safety Report 7402807-5 (Version None)
Quarter: 2011Q2

REPORT INFORMATION
  Report Type: 
  Country: None (occurrence: None)
  Receive Date: 20110408
  Receipt Date: 20110328
  Transmission Date: 20111010
  Serious: Yes (Hospitalization)
  Sender: FDA-Public Use
  Company Number: FR-MPIJNJ-2011-01372

PATIENT

DRUGS (11)
  1. DEXAMETHASONE [Concomitant]
  2. VELCADE [Suspect]
     Indication: MULTIPLE MYELOMA
     Dosage: UNK
     Route: 042
     Dates: start: 20101122
  3. LASIX [Concomitant]
  4. ATARAX [Concomitant]
  5. PIPERACILLIN AND TAZOBACTAM [Concomitant]
  6. ZELITREX                           /01269701/ [Concomitant]
  7. SKENAN [Concomitant]
  8. VANCOMYCIN [Concomitant]
  9. NEXIUM [Concomitant]
  10. IMOVANE [Concomitant]
  11. ATHYMIL [Concomitant]

REACTIONS (2)
  - HEPATITIS B [None]
  - CYTOLYTIC HEPATITIS [None]
